FAERS Safety Report 24670390 (Version 1)
Quarter: 2024Q4

REPORT INFORMATION
  Report Type: Spontaneous
  Country: US (occurrence: None)
  Receive Date: 20241127
  Receipt Date: 20241127
  Transmission Date: 20250115
  Serious: Yes (Death)
  Sender: Public
  Company Number: None

PATIENT
  Age: 84 Year
  Sex: Female

DRUGS (11)
  1. DUPIXENT [Suspect]
     Active Substance: DUPILUMAB
     Indication: Dermatitis atopic
     Dosage: FREQUENCY : EVERY OTHER WEEK;?
     Route: 058
     Dates: start: 20240816, end: 20241121
  2. EYLEA [Concomitant]
     Active Substance: AFLIBERCEPT
  3. LEVALBUTEROL [Concomitant]
     Active Substance: LEVALBUTEROL
  4. NOVOLOG FLEXPEN [Concomitant]
  5. OMEPRAZOLE [Concomitant]
     Active Substance: OMEPRAZOLE
  6. PULMICORT TURBUHALER [Concomitant]
     Active Substance: BUDESONIDE
  7. SUCRALFATE [Concomitant]
     Active Substance: SUCRALFATE
  8. TACROLIMUS [Concomitant]
     Active Substance: TACROLIMUS
  9. TOUJEO [Concomitant]
     Active Substance: INSULIN GLARGINE
  10. URSODIOL [Concomitant]
     Active Substance: URSODIOL
  11. CYANOCOBALAMIN [Concomitant]
     Active Substance: CYANOCOBALAMIN

REACTIONS (1)
  - Death [None]

NARRATIVE: CASE EVENT DATE: 20241121
